FAERS Safety Report 6216758-5 (Version None)
Quarter: 2009Q2

REPORT INFORMATION
  Report Type: 
  Country: None (occurrence: None)
  Receive Date: 20090603
  Receipt Date: 20090603
  Transmission Date: 20091009
  Serious: No
  Sender: FDA-Public Use
  Company Number: None

PATIENT
  Sex: Female
  Weight: 108.8633 kg

DRUGS (1)
  1. LAMICTAL [Suspect]
     Indication: EPILEPSY
     Dosage: 500MG DAILY 200 MG 100MG 200MG PO
     Route: 048
     Dates: start: 20081017, end: 20081020

REACTIONS (4)
  - ABDOMINAL PAIN UPPER [None]
  - IMPAIRED WORK ABILITY [None]
  - MALAISE [None]
  - MUSCLE SPASMS [None]
